FAERS Safety Report 8638241 (Version 3)
Quarter: 2013Q3

REPORT INFORMATION
  Report Type: Report from Study
  Country: CA (occurrence: CA)
  Receive Date: 20120627
  Receipt Date: 20130802
  Transmission Date: 20140515
  Serious: Yes (Other)
  Sender: FDA-Public Use
  Company Number: PHHY2012CA053775

PATIENT
  Sex: Female

DRUGS (3)
  1. TASIGNA [Suspect]
     Indication: CHRONIC MYELOID LEUKAEMIA
     Dosage: 300 MG, BID
     Route: 048
     Dates: start: 20120406
  2. CITALOPRAM [Concomitant]
  3. ATIVAN [Concomitant]
     Dosage: 1 MG, QHS

REACTIONS (8)
  - Papilloma conjunctival [Unknown]
  - Lacrimal disorder [Unknown]
  - Nail disorder [Unknown]
  - Tendon disorder [Unknown]
  - Joint stiffness [Unknown]
  - Erythema of eyelid [Unknown]
  - Eye swelling [Recovered/Resolved]
  - Visual impairment [Unknown]
